FAERS Safety Report 8810655 (Version 1)
Quarter: 2012Q4

REPORT INFORMATION
  Report Type: Spontaneous
  Country: US (occurrence: None)
  Receive Date: 20120924
  Receipt Date: 20120924
  Transmission Date: 20130627
  Serious: Yes (Other)
  Sender: FDA-Public Use
  Company Number: None

PATIENT
  Sex: Male
  Weight: 165.56 kg

DRUGS (2)
  1. CHANTIX [Suspect]
     Indication: HOSTILITY
     Dosage: 1 to 2 dose a day start out 1 dose a day the side effects last 2 to 3 week
  2. CHANTIX [Suspect]
     Indication: MOOD SWINGS
     Dosage: 1 to 2 dose a day start out 1 dose a day the side effects last 2 to 3 week

REACTIONS (2)
  - Hostility [None]
  - Mood swings [None]
